FAERS Safety Report 7480679-0 (Version None)
Quarter: 2011Q2

REPORT INFORMATION
  Report Type: 
  Country: None (occurrence: None)
  Receive Date: 20110516
  Receipt Date: 20110120
  Transmission Date: 20111010
  Serious: Yes (Hospitalization, Other)
  Sender: FDA-Public Use
  Company Number: US-BAYER-201039242NA

PATIENT
  Age: 31 Year
  Sex: Female
  Weight: 122.45 kg

DRUGS (7)
  1. DROSPIRENONE AND ETHINYL ESTRADIOL [Suspect]
     Indication: MENSTRUAL CYCLE MANAGEMENT
  2. YASMIN [Suspect]
     Indication: CYST
     Dosage: UNK
     Dates: start: 20010101
  3. YASMIN [Suspect]
     Indication: MENSTRUAL CYCLE MANAGEMENT
     Route: 048
     Dates: start: 20020401
  4. DROSPIRENONE AND ETHINYL ESTRADIOL [Suspect]
     Indication: CYST
     Dosage: UNK
     Dates: start: 20010101
  5. ANTIBIOTICS [Concomitant]
  6. MOTRIN [Concomitant]
     Dosage: UNK UNK, PRN
  7. ZESTRIL [Concomitant]
     Indication: HYPERTENSION
     Dosage: UNK
     Dates: start: 19990101

REACTIONS (4)
  - CHOLECYSTITIS CHRONIC [None]
  - GALLBLADDER NON-FUNCTIONING [None]
  - CHOLECYSTITIS [None]
  - CHOLELITHIASIS [None]
